FAERS Safety Report 7917942-2 (Version None)
Quarter: 2011Q4

REPORT INFORMATION
  Report Type: 
  Country: None (occurrence: None)
  Receive Date: 20111116
  Receipt Date: 20111107
  Transmission Date: 20120403
  Serious: Yes (Other)
  Sender: FDA-Public Use
  Company Number: US-JNJFOC-20111102687

PATIENT
  Sex: Male
  Weight: 78.2 kg

DRUGS (15)
  1. SIMVASTATIN [Concomitant]
  2. PROBIOTIC [Concomitant]
  3. A MULTIVITAMIN [Concomitant]
  4. VALIUM [Concomitant]
  5. GLYBURIDE [Concomitant]
  6. VITAMIN B-12 [Concomitant]
  7. IMURAN [Concomitant]
  8. REMICADE [Suspect]
     Route: 042
     Dates: start: 20071101, end: 20090601
  9. CARAFATE [Concomitant]
  10. BYETTA [Concomitant]
  11. REMICADE [Suspect]
     Indication: COLITIS ULCERATIVE
     Route: 042
     Dates: start: 20090801, end: 20111005
  12. APRISO [Concomitant]
  13. IMODIUM [Concomitant]
  14. GLUCOPHAGE [Concomitant]
  15. PREDNISONE TAB [Concomitant]

REACTIONS (2)
  - LUNG NEOPLASM MALIGNANT [None]
  - METASTASES TO LIVER [None]
